FAERS Safety Report 25951267 (Version 3)
Quarter: 2025Q4

REPORT INFORMATION
  Report Type: Report from Study
  Country: GB (occurrence: GB)
  Receive Date: 20251023
  Receipt Date: 20251105
  Transmission Date: 20260118
  Serious: Yes (Hospitalization)
  Sender: ABBVIE
  Company Number: GB-ABBVIE-6512717

PATIENT
  Age: 68 Year
  Sex: Female

DRUGS (5)
  1. CARBIDOPA\LEVODOPA [Suspect]
     Active Substance: CARBIDOPA\LEVODOPA
     Indication: Parkinson^s disease
     Dosage: MD 1.4 CR 2.5 ED 1.5
     Route: 050
     Dates: start: 2020
  2. CARBIDOPA\LEVODOPA [Suspect]
     Active Substance: CARBIDOPA\LEVODOPA
     Dosage: MD 1.5 CR 1.5 ED 1.5
     Route: 050
  3. CARBIDOPA\LEVODOPA [Suspect]
     Active Substance: CARBIDOPA\LEVODOPA
     Dosage: MD 1.4 CR 1.5 ED 1.5
     Route: 050
     Dates: start: 20251020
  4. RIVASTIGMINE [Concomitant]
     Active Substance: RIVASTIGMINE
     Indication: Product used for unknown indication
  5. QUETIAPINE FUMARATE [Concomitant]
     Active Substance: QUETIAPINE FUMARATE
     Indication: Product used for unknown indication

REACTIONS (9)
  - Fracture [Unknown]
  - Weight decreased [Unknown]
  - Dyskinesia [Recovering/Resolving]
  - Gait inability [Unknown]
  - Fall [Unknown]
  - Malaise [Unknown]
  - Pneumonia aspiration [Unknown]
  - Fracture pain [Unknown]
  - Delirium [Unknown]

NARRATIVE: CASE EVENT DATE: 20251001
